FAERS Safety Report 14907335 (Version 12)
Quarter: 2019Q2

REPORT INFORMATION
  Report Type: Spontaneous
  Country: JP (occurrence: JP)
  Receive Date: 20180517
  Receipt Date: 20190626
  Transmission Date: 20190711
  Serious: Yes (Death, Life-Threatening, Hospitalization, Other)
  Sender: FDA-Public Use
  Company Number: JP-BRISTOL-MYERS SQUIBB COMPANY-BMS-2018-029967

PATIENT
  Age: 32 Year
  Sex: Male
  Weight: 70 kg

DRUGS (11)
  1. TRAMCET [Suspect]
     Active Substance: ACETAMINOPHEN\TRAMADOL
     Indication: ARTHRALGIA
     Dosage: 4 DOSAGE FORM EVERYDAY
     Route: 048
     Dates: start: 20180325, end: 20180501
  2. BETAMETHASONE. [Suspect]
     Active Substance: BETAMETHASONE
     Indication: EPIGLOTTITIS
     Dosage: 2 MILLIGRAM, EVERYDAY
     Route: 065
     Dates: start: 20180505, end: 20180505
  3. MAGNESCOPE [Suspect]
     Active Substance: GADOTERATE MEGLUMINE
     Indication: ANGIOGRAM
     Dosage: UNK
     Route: 065
  4. BETAMETHASONE. [Suspect]
     Active Substance: BETAMETHASONE
     Indication: PRODUCT USED FOR UNKNOWN INDICATION
     Dosage: 1 DOSAGE FORM, Q12H
     Route: 001
     Dates: start: 20180403, end: 20180419
  5. BETAMETHASONE. [Suspect]
     Active Substance: BETAMETHASONE
     Indication: OTITIS EXTERNA
     Dosage: UNK
     Route: 065
     Dates: start: 20180505, end: 20180508
  6. OPDIVO [Suspect]
     Active Substance: NIVOLUMAB
     Indication: HEAD AND NECK CANCER
     Dosage: 3 MILLIGRAM/KILOGRAM
     Route: 041
     Dates: start: 20170904, end: 20180424
  7. BETAMETHASONE. [Suspect]
     Active Substance: BETAMETHASONE
     Indication: PRODUCT USED FOR UNKNOWN INDICATION
     Dosage: 18 MILLIGRAM, EVERYDAY
     Route: 065
     Dates: start: 20180514, end: 20180514
  8. BAYASPIRIN [Suspect]
     Active Substance: ASPIRIN
     Indication: PROPHYLAXIS
     Dosage: 100 MILLIGRAM, EVERYDAY
     Route: 065
     Dates: start: 20180509
  9. ROPION [Suspect]
     Active Substance: FLURBIPROFEN AXETIL
     Indication: PRODUCT USED FOR UNKNOWN INDICATION
     Dosage: 50 MILLIGRAM, EVERYDAY
     Route: 065
     Dates: start: 20180522, end: 20180523
  10. TRAMAL [Suspect]
     Active Substance: TRAMADOL
     Indication: ARTHRALGIA
     Dosage: UNK
     Route: 065
  11. BAYASPIRIN [Suspect]
     Active Substance: ASPIRIN
     Indication: CEREBRAL INFARCTION
     Dosage: 200 MILLIGRAM, EVERYDAY
     Route: 065
     Dates: start: 20180502, end: 20180508

REACTIONS (24)
  - Respiratory failure [Recovering/Resolving]
  - Vocal cord paralysis [Not Recovered/Not Resolved]
  - Haematochezia [Recovering/Resolving]
  - Vision blurred [Recovered/Resolved]
  - Cerebral infarction [Not Recovered/Not Resolved]
  - Nausea [Recovering/Resolving]
  - Epilepsy [Recovered/Resolved]
  - Hypoaesthesia oral [Recovered/Resolved]
  - Headache [Not Recovered/Not Resolved]
  - Diplopia [Recovered/Resolved]
  - Pyrexia [Recovering/Resolving]
  - Eyelid ptosis [Recovering/Resolving]
  - Vomiting [Recovering/Resolving]
  - Pneumonia aspiration [Fatal]
  - Anaemia [Not Recovered/Not Resolved]
  - Musculoskeletal pain [Not Recovered/Not Resolved]
  - Otitis externa [Recovering/Resolving]
  - Cough [Recovered/Resolved]
  - Epiglottitis [Recovering/Resolving]
  - Contrast media allergy [Recovered/Resolved]
  - Myositis [Unknown]
  - Malignant neoplasm progression [Fatal]
  - Dysphagia [Not Recovered/Not Resolved]
  - Malaise [Not Recovered/Not Resolved]

NARRATIVE: CASE EVENT DATE: 20171003
